FAERS Safety Report 16591486 (Version 3)
Quarter: 2019Q3

REPORT INFORMATION
  Report Type: Spontaneous
  Country: US (occurrence: US)
  Receive Date: 20190718
  Receipt Date: 20190916
  Transmission Date: 20191004
  Serious: No
  Sender: FDA-Public Use
  Company Number: US-PFIZER INC-2019308193

PATIENT
  Age: 82 Year
  Sex: Female

DRUGS (2)
  1. PREMARIN [Suspect]
     Active Substance: ESTROGENS, CONJUGATED
     Dosage: UNK, CYCLIC (INSERT 0.5 APPLICATOR FUL BY VAGINAL ROUTE EVERY DAY CYCLICALLY ,3 WEEKS ON AND 1 WEEK)
     Route: 067
  2. PREMARIN [Suspect]
     Active Substance: ESTROGENS, CONJUGATED
     Indication: VULVOVAGINAL DRYNESS
     Dosage: 0.625 MG, CYCLIC [ONCE A DAY FOR THREE WEEKS AND OFF IT FOR ONE WEEK AND THEN ON IT FOR THREE WEEKS]

REACTIONS (1)
  - Hypoacusis [Unknown]
